FAERS Safety Report 4797146-5 (Version None)
Quarter: 2005Q3

REPORT INFORMATION
  Report Type: 
  Country: None (occurrence: None)
  Receive Date: 20050916
  Receipt Date: 20050511
  Transmission Date: 20060218
  Serious: Yes (Other)
  Sender: FDA-Public Use
  Company Number: US-JNJFOC-20050405596

PATIENT
  Age: 16 Year
  Sex: Male
  Weight: 58 kg

DRUGS (4)
  1. TOPAMAX [Suspect]
     Indication: MIGRAINE
     Dosage: 75+ 100 MG, IN 1 DAY, ORAL
     Route: 048
     Dates: start: 20040201, end: 20040401
  2. TOPAMAX [Suspect]
     Indication: MIGRAINE
     Dosage: 75+ 100 MG, IN 1 DAY, ORAL
     Route: 048
     Dates: start: 20050401
  3. PROZAC [Concomitant]
  4. ADDERALL (OBETROL) UNSPECIFIED [Concomitant]

REACTIONS (1)
  - DRUG WITHDRAWAL CONVULSIONS [None]
